FAERS Safety Report 4500703-4 (Version None)
Quarter: 2004Q4

REPORT INFORMATION
  Report Type: 
  Country: None (occurrence: None)
  Receive Date: 20041109
  Receipt Date: 20041025
  Transmission Date: 20050328
  Serious: Yes (Other)
  Sender: FDA-Public Use
  Company Number: USA041082173

PATIENT
  Age: 12 Year
  Sex: Female

DRUGS (1)
  1. STRATTERA [Suspect]
     Dates: start: 20041025

REACTIONS (3)
  - CARDIAC DISORDER [None]
  - CHEST DISCOMFORT [None]
  - HEART RATE INCREASED [None]
